FAERS Safety Report 5824634-2 (Version None)
Quarter: 2008Q3

REPORT INFORMATION
  Report Type: 
  Country: None (occurrence: None)
  Receive Date: 20080722
  Receipt Date: 20080710
  Transmission Date: 20090109
  Serious: Yes (Disabling)
  Sender: FDA-Public Use
  Company Number: 1-16402201/MED-08130

PATIENT
  Age: 33 Year
  Sex: Male

DRUGS (4)
  1. TRAMADOL HCL [Suspect]
     Indication: DRUG USE FOR UNKNOWN INDICATION
     Dosage: UP TO 10 G, ONCE; ORAL
     Route: 048
  2. GABAPENTIN [Suspect]
     Indication: DRUG USE FOR UNKNOWN INDICATION
     Dosage: UP TO 6 G, ONCE; ORAL
     Route: 048
  3. HYDROXYZINE [Suspect]
     Indication: DRUG USE FOR UNKNOWN INDICATION
     Dosage: UP TO 6 GRAMS, ONCE, ORAL
     Route: 048
  4. CLONAZEPAM [Suspect]
     Indication: DRUG USE FOR UNKNOWN INDICATION
     Dosage: UP TO 80 MG, ONCE; ORAL
     Route: 048

REACTIONS (17)
  - BLOOD ALBUMIN DECREASED [None]
  - BLOOD BICARBONATE DECREASED [None]
  - BLOOD CREATINE PHOSPHOKINASE INCREASED [None]
  - BUNDLE BRANCH BLOCK RIGHT [None]
  - CARDIAC ARREST [None]
  - CEREBRAL DISORDER [None]
  - CONTINUOUS HAEMODIAFILTRATION [None]
  - CONVULSION [None]
  - ELECTROCARDIOGRAM QT PROLONGED [None]
  - HYPOGLYCAEMIA [None]
  - HYPOTENSION [None]
  - MULTIPLE DRUG OVERDOSE INTENTIONAL [None]
  - MYOGLOBIN BLOOD INCREASED [None]
  - RENAL FAILURE ACUTE [None]
  - SHOCK [None]
  - VENTRICULAR FIBRILLATION [None]
  - VENTRICULAR TACHYCARDIA [None]
